FAERS Safety Report 4422838-7 (Version None)
Quarter: 2004Q3

REPORT INFORMATION
  Report Type: 
  Country: None (occurrence: None)
  Receive Date: 20040810
  Receipt Date: 20040810
  Transmission Date: 20050211
  Serious: Yes (Other)
  Sender: FDA-Public Use
  Company Number: None

PATIENT
  Age: 71 Year
  Sex: Male
  Weight: 88.4514 kg

DRUGS (4)
  1. CELEBREX [Suspect]
     Indication: OSTEOARTHRITIS
     Dosage: TWO EACH, FOUR TIMES DAY
     Dates: start: 20040712, end: 20040715
  2. PERCOCET [Suspect]
     Indication: POST PROCEDURAL PAIN
     Dosage: ONE DAILY
     Dates: start: 20040712, end: 20040715
  3. PREDNISONE [Concomitant]
  4. ZANTAC [Concomitant]

REACTIONS (1)
  - MEDICATION ERROR [None]
